FAERS Safety Report 25829106 (Version 1)
Quarter: 2025Q3

REPORT INFORMATION
  Report Type: Report from Study
  Country: US (occurrence: US)
  Receive Date: 20250922
  Receipt Date: 20250922
  Transmission Date: 20251021
  Serious: Yes (Other)
  Sender: TAKEDA
  Company Number: US-TAKEDA-2025TUS081924

PATIENT
  Sex: Male
  Weight: 108.84 kg

DRUGS (15)
  1. TEDUGLUTIDE [Suspect]
     Active Substance: TEDUGLUTIDE
     Indication: Short-bowel syndrome
     Dosage: 0.54 MILLILITER, QD
  2. TEDUGLUTIDE [Suspect]
     Active Substance: TEDUGLUTIDE
  3. TEDUGLUTIDE [Suspect]
     Active Substance: TEDUGLUTIDE
  4. TEDUGLUTIDE [Suspect]
     Active Substance: TEDUGLUTIDE
  5. POTASSIUM [Concomitant]
     Active Substance: POTASSIUM
  6. ASPIRIN [Concomitant]
     Active Substance: ASPIRIN
  7. Vitamin D3 K2 [Concomitant]
  8. SILDENAFIL CITRATE [Concomitant]
     Active Substance: SILDENAFIL CITRATE
  9. BUPROPION [Concomitant]
     Active Substance: BUPROPION
  10. METOPROLOL SUCCINATE [Concomitant]
     Active Substance: METOPROLOL SUCCINATE
  11. TAMSULOSIN HYDROCHLORIDE [Concomitant]
     Active Substance: TAMSULOSIN HYDROCHLORIDE
  12. LISINOPRIL [Concomitant]
     Active Substance: LISINOPRIL
  13. ALLOPURINOL [Concomitant]
     Active Substance: ALLOPURINOL
  14. ZOLOFT [Concomitant]
     Active Substance: SERTRALINE HYDROCHLORIDE
  15. OMEPRAZOLE [Concomitant]
     Active Substance: OMEPRAZOLE

REACTIONS (8)
  - Disability [Unknown]
  - Fatigue [Unknown]
  - Weight fluctuation [Unknown]
  - Injection site bruising [Unknown]
  - Muscle spasms [Unknown]
  - Pain [Unknown]
  - Nausea [Unknown]
  - Flatulence [Unknown]
